FAERS Safety Report 8379854-2 (Version None)
Quarter: 2012Q2

REPORT INFORMATION
  Report Type: 
  Country: None (occurrence: None)
  Receive Date: 20120523
  Receipt Date: 20120511
  Transmission Date: 20120825
  Serious: Yes (Hospitalization, Other)
  Sender: FDA-Public Use
  Company Number: PE-SANOFI-AVENTIS-2012SA024267

PATIENT
  Age: 75 Year
  Sex: Female
  Weight: 97 kg

DRUGS (13)
  1. FLUCONAZOLE [Concomitant]
     Dates: start: 20120318, end: 20120320
  2. DOCETAXEL [Suspect]
     Route: 042
     Dates: start: 20120312, end: 20120312
  3. BLINDED THERAPY [Suspect]
     Route: 065
     Dates: end: 20120312
  4. DOCETAXEL [Suspect]
     Route: 042
     Dates: start: 20110316, end: 20110516
  5. PREDNISONE [Concomitant]
     Dates: start: 20110101, end: 20120320
  6. AMLODIPINE BESYLATE [Concomitant]
     Dates: start: 20120303, end: 20120412
  7. VALSARTAN [Concomitant]
     Dates: start: 20120403, end: 20120412
  8. FUROSEMIDE [Concomitant]
  9. HYDROCHLOROTHIAZIDE [Concomitant]
     Dates: start: 20120316, end: 20120317
  10. OMEPRAZOLE [Concomitant]
     Dates: start: 20120320
  11. BLINDED THERAPY [Suspect]
     Route: 065
     Dates: start: 20110516
  12. CEPHALEXIN [Concomitant]
     Dates: start: 20120315, end: 20120320
  13. LOSARTAN POTASSIUM [Concomitant]
     Dates: start: 20120316, end: 20120320

REACTIONS (8)
  - GENERALISED OEDEMA [None]
  - PNEUMONIA [None]
  - ENCEPHALOPATHY [None]
  - ORAL CANDIDIASIS [None]
  - INFECTION [None]
  - CONJUNCTIVITIS [None]
  - PROTEIN URINE PRESENT [None]
  - CONFUSIONAL STATE [None]
